FAERS Safety Report 12441553 (Version 1)
Quarter: 2016Q2

REPORT INFORMATION
  Report Type: Spontaneous
  Country: US (occurrence: US)
  Receive Date: 20160607
  Receipt Date: 20160607
  Transmission Date: 20160815
  Serious: No
  Sender: FDA-Public Use
  Company Number: US-TEVA-660498ACC

PATIENT
  Age: 22 Year
  Sex: Female
  Weight: 127.12 kg

DRUGS (1)
  1. TAKE ACTION [Suspect]
     Active Substance: LEVONORGESTREL
     Indication: POST COITAL CONTRACEPTION
     Dates: start: 20160511, end: 20160511

REACTIONS (3)
  - Hot flush [Recovered/Resolved]
  - Feeling abnormal [Recovered/Resolved]
  - Heart rate increased [Recovered/Resolved]

NARRATIVE: CASE EVENT DATE: 20160511
